FAERS Safety Report 4641054-7 (Version None)
Quarter: 2005Q2

REPORT INFORMATION
  Report Type: 
  Country: None (occurrence: None)
  Receive Date: 20050421
  Receipt Date: 20050408
  Transmission Date: 20051028
  Serious: Yes (Other)
  Sender: FDA-Public Use
  Company Number: ES-JNJFOC-20050402759

PATIENT
  Sex: Female

DRUGS (4)
  1. REMICADE [Suspect]
     Dosage: THE LAST THREE DOSES WERE ADMINISTERED EVRY 8 WEEKS.
     Route: 042
  2. REMICADE [Suspect]
     Indication: CROHN'S DISEASE
     Route: 042
  3. AZATHIOPRINE [Concomitant]
     Indication: CROHN'S DISEASE
  4. CLAVERSAL [Concomitant]
     Indication: CROHN'S DISEASE

REACTIONS (1)
  - LUPUS-LIKE SYNDROME [None]
